FAERS Safety Report 10282732 (Version 3)
Quarter: 2017Q1

REPORT INFORMATION
  Report Type: Report from Study
  Country: CZ (occurrence: CZ)
  Receive Date: 20140708
  Receipt Date: 20170216
  Transmission Date: 20170428
  Serious: Yes (Hospitalization)
  Sender: FDA-Public Use
  Company Number: CZ-ROCHE-1090754

PATIENT
  Age: 77 Year
  Sex: Male
  Weight: 81.5 kg

DRUGS (19)
  1. OBINUTUZUMAB [Suspect]
     Active Substance: OBINUTUZUMAB
     Indication: NON-HODGKIN^S LYMPHOMA
     Dosage: DATE OF MOST RECENT DOSE (VOLUME : 250 ML AND DOSE CONCENTRATION : 4 MG/ML) PRIOR TO SAE ONSET : 21/
     Route: 042
     Dates: start: 20120215
  2. DIFLUCAN [Concomitant]
     Active Substance: FLUCONAZOLE
     Route: 065
     Dates: start: 20120705, end: 20120715
  3. PREDNISONE. [Suspect]
     Active Substance: PREDNISONE
     Indication: NON-HODGKIN^S LYMPHOMA
     Dosage: DATE OF LAST DOSE (100 MG) PRIOR TO SAE ONSET : 22/APR/2012.
     Route: 065
     Dates: start: 20120215, end: 20120419
  4. RAMIPRIL. [Concomitant]
     Active Substance: RAMIPRIL
     Indication: MYOCARDIAL ISCHAEMIA
  5. ENOXAPARIN SODIUM. [Concomitant]
     Active Substance: ENOXAPARIN SODIUM
     Indication: MYOCARDIAL ISCHAEMIA
     Route: 065
     Dates: start: 20120130
  6. CYCLOPHOSPHAMIDE. [Suspect]
     Active Substance: CYCLOPHOSPHAMIDE
     Indication: NON-HODGKIN^S LYMPHOMA
     Dosage: DATE OF LAST DOSE (1440 MG) PRIOR TO SAE ONSET : 19/APR/2012.
     Route: 042
     Dates: start: 20120215, end: 20120419
  7. LANSOPRAZOLUM [Concomitant]
     Indication: GASTRITIS
  8. FLUCONAZOL [Concomitant]
     Active Substance: FLUCONAZOLE
     Indication: OESOPHAGEAL CANDIDIASIS
     Route: 065
     Dates: start: 20120623, end: 20120704
  9. HYDROCORTISONUM [Concomitant]
     Active Substance: HYDROCORTISONE
     Route: 065
     Dates: start: 20120215
  10. BISULEPIN HYDROCHLORIDE [Concomitant]
     Active Substance: BISULEPIN HYDROCHLORIDE
     Indication: PROPHYLAXIS
     Route: 065
     Dates: start: 20120215
  11. ACYCLOVIR. [Concomitant]
     Active Substance: ACYCLOVIR
     Indication: HERPES VIRUS INFECTION
     Route: 065
     Dates: start: 20120419, end: 20120823
  12. VINCRISTINE [Suspect]
     Active Substance: VINCRISTINE
     Indication: NON-HODGKIN^S LYMPHOMA
     Dosage: DATE OF LAST DOSE (2 MG) PRIOR TO SAE ONSET : 19/APR/2012.
     Route: 040
     Dates: start: 20120215, end: 20120419
  13. BISOPROLOLI FUMARAS [Concomitant]
     Indication: MYOCARDIAL ISCHAEMIA
     Route: 065
     Dates: start: 2005
  14. PARACETAMOL [Concomitant]
     Active Substance: ACETAMINOPHEN
     Indication: PROPHYLAXIS
     Route: 065
     Dates: start: 20120215
  15. OMEPRAZOLUM [Concomitant]
     Indication: PROPHYLAXIS
     Route: 065
     Dates: start: 20120215
  16. SULFAMETHOXAZOLUM [Concomitant]
     Indication: HERPES VIRUS INFECTION
     Route: 065
     Dates: start: 20120419, end: 20120823
  17. WARFARINUM NATRICUM [Concomitant]
     Indication: THROMBOSIS PROPHYLAXIS
     Route: 065
     Dates: start: 20120707
  18. DOXORUBICIN [Suspect]
     Active Substance: DOXORUBICIN
     Indication: NON-HODGKIN^S LYMPHOMA
     Dosage: DATE OF LAST DOSE (96 MG) PRIOR TO SAE ONSET : 19/APR/2012.
     Route: 042
     Dates: start: 20120215, end: 20120419
  19. PEGFILGRASTIMUM [Concomitant]
     Indication: PROPHYLAXIS
     Route: 065
     Dates: start: 20120222, end: 20130606

REACTIONS (1)
  - Atrial fibrillation [Recovered/Resolved]

NARRATIVE: CASE EVENT DATE: 20120712
